FAERS Safety Report 6522188-9 (Version None)
Quarter: 2009Q4

REPORT INFORMATION
  Report Type: 
  Country: None (occurrence: None)
  Receive Date: 20091222
  Receipt Date: 20091215
  Transmission Date: 20100525
  Serious: Yes (Death)
  Sender: FDA-Public Use
  Company Number: ALL1-2009-04052

PATIENT
  Age: 68 Year
  Sex: Female

DRUGS (1)
  1. FOSRENOL [Suspect]
     Indication: HYPERPHOSPHATAEMIA
     Dosage: OTHER (3 TABLETS WITH EACH MEAL), ORAL
     Route: 048
     Dates: end: 20091101

REACTIONS (1)
  - UNEVALUABLE EVENT [None]
